FAERS Safety Report 7279668-0 (Version None)
Quarter: 2011Q1

REPORT INFORMATION
  Report Type: 
  Country: None (occurrence: None)
  Receive Date: 20110203
  Receipt Date: 20110203
  Transmission Date: 20110831
  Serious: Yes (Hospitalization)
  Sender: FDA-Public Use
  Company Number: None

PATIENT
  Age: 32 Year
  Sex: Female
  Weight: 127.0072 kg

DRUGS (2)
  1. COLISTIN SULFATE [Suspect]
     Indication: LUNG INFECTION PSEUDOMONAL
     Dosage: 75 MG Q 12 HOURS INHAL
     Route: 055
     Dates: start: 20110118, end: 20110125
  2. AMIKACIN [Suspect]

REACTIONS (1)
  - TRACHEAL HAEMORRHAGE [None]
